FAERS Safety Report 6417167-6 (Version None)
Quarter: 2009Q4

REPORT INFORMATION
  Report Type: 
  Country: None (occurrence: None)
  Receive Date: 20091028
  Receipt Date: 20091021
  Transmission Date: 20100525
  Serious: Yes (Other)
  Sender: FDA-Public Use
  Company Number: US-AMGEN-QUU370347

PATIENT
  Sex: Male
  Weight: 93 kg

DRUGS (18)
  1. EPOGEN [Suspect]
     Indication: DIALYSIS
     Route: 058
     Dates: start: 20030101
  2. ASPIRIN [Concomitant]
  3. ALLOPURINOL [Concomitant]
  4. BENAZEPRIL HYDROCHLORIDE [Concomitant]
  5. CLONIDINE [Concomitant]
  6. IRON SULFATETHIAMIN COMPOUND TAB [Concomitant]
  7. FOLIC ACID [Concomitant]
  8. GEMFIBROZIL [Concomitant]
  9. GENTAMICIN [Concomitant]
  10. GLIPIZIDE [Concomitant]
  11. HYDRALAZINE HCL [Concomitant]
  12. MAGNESIUM GLUCONATE [Concomitant]
  13. NORVASC [Concomitant]
  14. METRONIDAZOLE [Concomitant]
     Route: 061
  15. PHOSLO [Concomitant]
  16. PRILOSEC [Concomitant]
  17. HEPARIN [Concomitant]
  18. UNSPECIFIED MEDICATION [Concomitant]

REACTIONS (2)
  - ECZEMA [None]
  - HAEMOGLOBIN DECREASED [None]
